FAERS Safety Report 8333136-3 (Version None)
Quarter: 2012Q1

REPORT INFORMATION
  Report Type: 
  Country: None (occurrence: None)
  Receive Date: 20120327
  Receipt Date: 20110222
  Transmission Date: 20120608
  Serious: Yes (Other)
  Sender: FDA-Public Use
  Company Number: PHHY2011US09164

PATIENT

DRUGS (8)
  1. VYTORIN [Concomitant]
  2. LEVOTHYROXINE SODIUM [Concomitant]
  3. BUPROPION HCL [Concomitant]
  4. FENTANYL [Concomitant]
  5. INSULIN [Concomitant]
  6. GLEEVEC [Suspect]
     Indication: CHRONIC MYELOID LEUKAEMIA
     Dosage: 300 MG, 400 MG, QD, ORAL
     Route: 048
     Dates: start: 20100915
  7. LASIX [Concomitant]
  8. DEXIDRINE (DEXAMFETAMINE SULFATE) [Concomitant]

REACTIONS (4)
  - OEDEMA [None]
  - RENAL FAILURE [None]
  - HYPOAESTHESIA [None]
  - NEUROPATHY PERIPHERAL [None]
